FAERS Safety Report 17949647 (Version 1)
Quarter: 2020Q2

REPORT INFORMATION
  Report Type: Spontaneous
  Country: JP (occurrence: JP)
  Receive Date: 20200626
  Receipt Date: 20200626
  Transmission Date: 20200714
  Serious: Yes (Death)
  Sender: FDA-Public Use
  Company Number: JP-PFIZER INC-2020245234

PATIENT

DRUGS (2)
  1. PRODIF [Suspect]
     Active Substance: FOSFLUCONAZOLE
  2. MEROPENEM. [Suspect]
     Active Substance: MEROPENEM

REACTIONS (1)
  - Death [Fatal]
